FAERS Safety Report 16832843 (Version 1)
Quarter: 2019Q3

REPORT INFORMATION
  Report Type: Spontaneous
  Country: RU (occurrence: RU)
  Receive Date: 20190920
  Receipt Date: 20190920
  Transmission Date: 20191005
  Serious: Yes (Other)
  Sender: FDA-Public Use
  Company Number: RU-ASTRAZENECA-2019SF31978

PATIENT
  Age: 10 Year
  Sex: Male
  Weight: 30 kg

DRUGS (7)
  1. PULMICORT TURBUHALER [Suspect]
     Active Substance: BUDESONIDE
     Indication: ASTHMA
     Dosage: 0.5 MG, TWO TIMES A DAY
     Route: 055
     Dates: start: 20190909
  2. PULMICORT TURBUHALER [Suspect]
     Active Substance: BUDESONIDE
     Indication: ASTHMA
     Dosage: 0.25 MG, ONCE A DAY
     Route: 055
  3. BERODUAL [Concomitant]
     Active Substance: FENOTEROL HYDROBROMIDE\IPRATROPIUM BROMIDE
     Dosage: 1/3 TAB 2 TIMES A DAY.
  4. EUPHYLLIN [Concomitant]
     Dosage: 1/3 TAB 2 TIMES A DAY
  5. PULMICORT TURBUHALER [Suspect]
     Active Substance: BUDESONIDE
     Indication: RESPIRATORY TRACT INFECTION
     Dosage: 0.5 MG, TWO TIMES A DAY
     Route: 055
     Dates: start: 20190909
  6. PULMICORT TURBUHALER [Suspect]
     Active Substance: BUDESONIDE
     Indication: RESPIRATORY TRACT INFECTION
     Dosage: 0.25 MG, ONCE A DAY
     Route: 055
  7. EUPHYLLIN [Concomitant]
     Dosage: 1\3 TABLET BID

REACTIONS (2)
  - Dyspnoea [Unknown]
  - Asphyxia [Unknown]
